FAERS Safety Report 18837945 (Version 1)
Quarter: 2021Q1

REPORT INFORMATION
  Report Type: Spontaneous
  Country: AU (occurrence: AU)
  Receive Date: 20210203
  Receipt Date: 20210203
  Transmission Date: 20210419
  Serious: Yes (Other)
  Sender: FDA-Public Use
  Company Number: AU-GLAXOSMITHKLINE-AUCH2021APC002487

PATIENT
  Age: 62 Year
  Sex: Female

DRUGS (2)
  1. IBUPROFEN UNKNOWN MANUFACTURER [Suspect]
     Active Substance: IBUPROFEN
     Indication: PRODUCT USED FOR UNKNOWN INDICATION
     Dosage: UNK
  2. PARECOXIB SODIUM. [Suspect]
     Active Substance: PARECOXIB SODIUM
     Indication: PRODUCT USED FOR UNKNOWN INDICATION
     Dosage: UNK

REACTIONS (1)
  - Acute kidney injury [Unknown]
